FAERS Safety Report 7638145-5 (Version None)
Quarter: 2011Q3

REPORT INFORMATION
  Report Type: 
  Country: None (occurrence: None)
  Receive Date: 20110727
  Receipt Date: 20110721
  Transmission Date: 20111222
  Serious: Yes (Death, Life-Threatening, Other)
  Sender: FDA-Public Use
  Company Number: US-JNJFOC-20100105329

PATIENT
  Age: 58 Year
  Sex: Male

DRUGS (5)
  1. ALL OTHER NON-THERAPEUTIC PRODUCTS [Suspect]
     Indication: ILL-DEFINED DISORDER
     Route: 048
  2. IBUPROFEN [Suspect]
     Indication: ILL-DEFINED DISORDER
     Route: 048
  3. ACETAMINOPHEN/DIPHENHYDRAMINE [Suspect]
     Indication: ILL-DEFINED DISORDER
     Route: 048
  4. OPIOIDS MEDICATION [Suspect]
     Indication: ILL-DEFINED DISORDER
     Route: 048
  5. SIMVASTATIN [Suspect]
     Indication: ILL-DEFINED DISORDER
     Route: 048

REACTIONS (1)
  - TOXICITY TO VARIOUS AGENTS [None]
